FAERS Safety Report 5948159-9 (Version None)
Quarter: 2008Q4

REPORT INFORMATION
  Report Type: 
  Country: None (occurrence: None)
  Receive Date: 20081111
  Receipt Date: 20081031
  Transmission Date: 20090506
  Serious: Yes (Life-Threatening, Hospitalization)
  Sender: FDA-Public Use
  Company Number: CA-CELGENEUS-028-21880-08110173

PATIENT
  Sex: Male
  Weight: 76 kg

DRUGS (7)
  1. REVLIMID [Suspect]
     Route: 048
     Dates: start: 20080211, end: 20080616
  2. REVLIMID [Suspect]
     Route: 048
     Dates: start: 20080616, end: 20080802
  3. ASPIRIN [Concomitant]
     Indication: PROPHYLAXIS
     Route: 065
     Dates: start: 19980101, end: 20080108
  4. AERIUS [Concomitant]
     Indication: RASH
     Route: 065
     Dates: start: 20080223
  5. TYLENOL [Concomitant]
     Indication: ABDOMINAL PAIN
     Route: 065
     Dates: start: 20080412
  6. CITALOPRAM HYDROBROMIDE [Concomitant]
     Indication: ANXIETY
     Route: 065
     Dates: start: 20080613
  7. CLONAZEPAM [Concomitant]
     Indication: SEDATION
     Route: 065
     Dates: start: 20080613

REACTIONS (4)
  - APHASIA [None]
  - NEUTROPENIA [None]
  - THROMBOCYTOPENIA [None]
  - TRANSIENT ISCHAEMIC ATTACK [None]
